FAERS Safety Report 9060141 (Version 1)
Quarter: 2013Q1

REPORT INFORMATION
  Report Type: Spontaneous
  Country: US (occurrence: None)
  Receive Date: 20130207
  Receipt Date: 20130207
  Transmission Date: 20140127
  Serious: Yes (Other)
  Sender: FDA-Public Use
  Company Number: None

PATIENT
  Age: 27 Year
  Sex: Female

DRUGS (1)
  1. COPAXONE [Suspect]
     Indication: MULTIPLE SCLEROSIS
     Route: 058
     Dates: start: 20121208, end: 20130207

REACTIONS (6)
  - Urticaria [None]
  - Lip swelling [None]
  - Eyelid oedema [None]
  - Dysphagia [None]
  - Speech disorder [None]
  - Blindness transient [None]
